FAERS Safety Report 24416040 (Version 1)
Quarter: 2024Q4

REPORT INFORMATION
  Report Type: Spontaneous
  Country: CN (occurrence: CN)
  Receive Date: 20241009
  Receipt Date: 20241009
  Transmission Date: 20250114
  Serious: Yes (Life-Threatening)
  Sender: JIANGSU HENGRUI MEDICINE
  Company Number: CN-Jiangsu Hengrui Medicine Co., Ltd.-2162699

PATIENT
  Age: 72 Year
  Sex: Female

DRUGS (8)
  1. IRINOTECAN HYDROCHLORIDE [Suspect]
     Active Substance: IRINOTECAN HYDROCHLORIDE
     Indication: Gallbladder cancer
     Dates: start: 20240918
  2. IRINOTECAN HYDROCHLORIDE [Suspect]
     Active Substance: IRINOTECAN HYDROCHLORIDE
     Dates: start: 20240820, end: 20240820
  3. AMLODIPINE [Concomitant]
     Active Substance: AMLODIPINE BESYLATE
  4. NIFEDIPINE [Concomitant]
     Active Substance: NIFEDIPINE
  5. CAMRELIZUMAB [Concomitant]
     Active Substance: CAMRELIZUMAB
     Dates: start: 20240820, end: 20240918
  6. LENVATINIB [Suspect]
     Active Substance: LENVATINIB
  7. FLUOROURACIL [Suspect]
     Active Substance: FLUOROURACIL
     Dates: start: 20240820
  8. LEUCOVORIN [Suspect]
     Active Substance: LEUCOVORIN\LEUCOVORIN CALCIUM
     Dates: start: 20240820, end: 20240918

REACTIONS (9)
  - Diarrhoea [Recovering/Resolving]
  - Product use in unapproved indication [Unknown]
  - Platelet count decreased [Not Recovered/Not Resolved]
  - Blood pressure increased [Recovering/Resolving]
  - Blood creatinine increased [Recovering/Resolving]
  - Procalcitonin increased [Recovering/Resolving]
  - Mouth ulceration [Recovering/Resolving]
  - Hyperpyrexia [Recovering/Resolving]
  - Abdominal infection [Recovering/Resolving]
